FAERS Safety Report 7745415-9 (Version None)
Quarter: 2011Q3

REPORT INFORMATION
  Report Type: 
  Country: None (occurrence: None)
  Receive Date: 20110913
  Receipt Date: 20110902
  Transmission Date: 20111222
  Serious: Yes (Hospitalization)
  Sender: FDA-Public Use
  Company Number: CA-JNJFOC-20110902363

PATIENT
  Sex: Female
  Weight: 56 kg

DRUGS (3)
  1. REMICADE [Suspect]
     Indication: CROHN'S DISEASE
     Dosage: 100MG/VIAL
     Route: 042
     Dates: start: 20101208
  2. BENADRYL [Concomitant]
     Route: 065
  3. ANTIDEPRESSANT [Concomitant]
     Route: 065

REACTIONS (1)
  - MIGRAINE [None]
